FAERS Safety Report 5513218-1 (Version None)
Quarter: 2007Q4

REPORT INFORMATION
  Report Type: 
  Country: None (occurrence: None)
  Receive Date: 20071112
  Receipt Date: 20071106
  Transmission Date: 20080405
  Serious: Yes (Hospitalization)
  Sender: FDA-Public Use
  Company Number: ES-GENENTECH-220863

PATIENT
  Sex: Male
  Weight: 88 kg

DRUGS (5)
  1. RITUXIMAB [Suspect]
     Indication: B-CELL LYMPHOMA
     Dosage: 800 MG, UNK
     Route: 042
     Dates: start: 20050829
  2. MITOXANTRONE [Suspect]
     Indication: B-CELL LYMPHOMA
     Dosage: 12 MG, UNK
     Route: 042
     Dates: start: 20050829
  3. CYCLOPHOSPHAMIDE [Suspect]
     Indication: B-CELL LYMPHOMA
     Dosage: 409 MG, UNK
     Route: 042
     Dates: start: 20050829
  4. FLUDARABINE PHOSPHATE [Suspect]
     Indication: B-CELL LYMPHOMA
     Dosage: 51 MG, UNK
     Route: 042
     Dates: start: 20050829
  5. SEPTRA [Suspect]
     Indication: DRUG USE FOR UNKNOWN INDICATION
     Dosage: 1 UNK, Q12H
     Route: 048
     Dates: start: 20050826

REACTIONS (1)
  - FEBRILE NEUTROPENIA [None]
